FAERS Safety Report 13023811 (Version 1)
Quarter: 2016Q4

REPORT INFORMATION
  Report Type: Spontaneous
  Country: IR (occurrence: IR)
  Receive Date: 20161213
  Receipt Date: 20161213
  Transmission Date: 20170207
  Serious: Yes (Hospitalization, Other)
  Sender: FDA-Public Use
  Company Number: IR-MYLANLABS-2016M1054362

PATIENT

DRUGS (2)
  1. AMLODIPINE [Concomitant]
     Active Substance: AMLODIPINE BESYLATE
     Indication: HYPERTENSION
     Dosage: 5 MG DAILY
     Route: 065
  2. SALBUTAMOL MYLAN [Suspect]
     Active Substance: ALBUTEROL
     Indication: ASTHMA
     Route: 050

REACTIONS (1)
  - Stress cardiomyopathy [Recovered/Resolved]
